FAERS Safety Report 5806459-7 (Version None)
Quarter: 2008Q3

REPORT INFORMATION
  Report Type: 
  Country: None (occurrence: None)
  Receive Date: 20080710
  Receipt Date: 20080628
  Transmission Date: 20090109
  Serious: Yes (Other)
  Sender: FDA-Public Use
  Company Number: US-PFIZER INC-2008038302

PATIENT
  Sex: Male
  Weight: 79.4 kg

DRUGS (1)
  1. CHANTIX [Suspect]
     Indication: SMOKING CESSATION THERAPY

REACTIONS (3)
  - EYE SWELLING [None]
  - OEDEMA PERIPHERAL [None]
  - SWELLING FACE [None]
